FAERS Safety Report 17652446 (Version 1)
Quarter: 2020Q2

REPORT INFORMATION
  Report Type: Spontaneous
  Country: SA (occurrence: SA)
  Receive Date: 20200409
  Receipt Date: 20200409
  Transmission Date: 20200713
  Serious: Yes (Congenital Anomaly)
  Sender: FDA-Public Use
  Company Number: SA-CELLTRION-2020-SA-000008

PATIENT
  Sex: Female

DRUGS (2)
  1. VALPROIC ACID. [Suspect]
     Active Substance: VALPROIC ACID
     Dosage: 500 MG/DAY
     Route: 065
  2. LAMOTRIGINE (NON-SPECIFIC) [Suspect]
     Active Substance: LAMOTRIGINE
     Indication: EPILEPSY
     Dosage: 50 MG/DAY
     Route: 065

REACTIONS (3)
  - Anencephaly [Not Recovered/Not Resolved]
  - Exposure during pregnancy [Unknown]
  - Foetal death [Unknown]
